FAERS Safety Report 11146950 (Version 1)
Quarter: 2015Q2

REPORT INFORMATION
  Report Type: Spontaneous
  Country: TR (occurrence: TR)
  Receive Date: 20150528
  Receipt Date: 20150528
  Transmission Date: 20150821
  Serious: Yes (Life-Threatening, Hospitalization)
  Sender: FDA-Public Use
  Company Number: TR-BAUSCH-BL-2015-013904

PATIENT
  Age: 5 Day
  Sex: Male
  Weight: 4.5 kg

DRUGS (1)
  1. AMMONUL [Suspect]
     Active Substance: SODIUM BENZOATE\SODIUM PHENYLACETATE
     Indication: HYPERAMMONAEMIA
     Route: 042
     Dates: start: 20150511, end: 20150514

REACTIONS (5)
  - Hyperglycaemia [Unknown]
  - Lactic acidosis [Unknown]
  - Hyperammonaemia [Unknown]
  - Renal failure [Unknown]
  - Hypotension [Unknown]

NARRATIVE: CASE EVENT DATE: 20150512
